FAERS Safety Report 8133211-2 (Version None)
Quarter: 2012Q1

REPORT INFORMATION
  Report Type: 
  Country: None (occurrence: None)
  Receive Date: 20120213
  Receipt Date: 20120209
  Transmission Date: 20120608
  Serious: Yes (Hospitalization, Other)
  Sender: FDA-Public Use
  Company Number: PHHY2012DE007575

PATIENT
  Sex: Female

DRUGS (3)
  1. MOVIPREP [Concomitant]
     Indication: CONSTIPATION
     Dosage: UNK
  2. VALSARTAN [Suspect]
     Indication: HYPERTENSION
     Dosage: 1 DF, QD
     Route: 048
     Dates: start: 20080101, end: 20120130
  3. ERGOCALCIFEROL [Concomitant]
     Indication: OSTEOPOROSIS
     Dosage: 1 DF, QD
     Route: 048
     Dates: start: 20000101

REACTIONS (1)
  - AUTOIMMUNE THROMBOCYTOPENIA [None]
